FAERS Safety Report 5714632-1 (Version None)
Quarter: 2008Q2

REPORT INFORMATION
  Report Type: 
  Country: None (occurrence: None)
  Receive Date: 20080423
  Receipt Date: 20080416
  Transmission Date: 20081010
  Serious: Yes (Death, Life-Threatening)
  Sender: FDA-Public Use
  Company Number: B0517661A

PATIENT
  Age: 15 Year
  Sex: Male

DRUGS (3)
  1. ALBENDAZOLE [Suspect]
     Dosage: 400MG SINGLE DOSE
     Route: 048
     Dates: start: 20070626, end: 20070626
  2. DIETHYLCARBAMAZINE CITRATE [Suspect]
     Dosage: 300MG SINGLE DOSE
     Route: 048
     Dates: start: 20070626, end: 20070626
  3. NO CONCURRENT MEDICATION [Concomitant]

REACTIONS (7)
  - GASTRITIS [None]
  - HAEMATEMESIS [None]
  - HEADACHE [None]
  - OCULAR HYPERAEMIA [None]
  - PYREXIA [None]
  - SHOCK [None]
  - VOMITING [None]
